FAERS Safety Report 4739821-4 (Version None)
Quarter: 2005Q3

REPORT INFORMATION
  Report Type: 
  Country: None (occurrence: None)
  Receive Date: 20050810
  Receipt Date: 20050517
  Transmission Date: 20060218
  Serious: No
  Sender: FDA-Public Use
  Company Number: US-GLAXOSMITHKLINE-A0558984A

PATIENT
  Sex: Female

DRUGS (4)
  1. PAXIL [Suspect]
     Indication: DEPRESSION
     Dosage: 20MG PER DAY
     Route: 048
     Dates: start: 20000901
  2. SEROQUEL [Concomitant]
  3. NEURONTIN [Concomitant]
  4. LIPITOR [Concomitant]

REACTIONS (4)
  - DEPRESSED MOOD [None]
  - DEPRESSION [None]
  - HYPERSOMNIA [None]
  - SOCIAL AVOIDANT BEHAVIOUR [None]
